FAERS Safety Report 4793890-4 (Version None)
Quarter: 2005Q4

REPORT INFORMATION
  Report Type: 
  Country: None (occurrence: None)
  Receive Date: 20051006
  Receipt Date: 20051006
  Transmission Date: 20060501
  Serious: Yes (Hospitalization, Other)
  Sender: FDA-Public Use
  Company Number: None

PATIENT
  Sex: Female
  Weight: 57.2 kg

DRUGS (13)
  1. PACLITAXEL [Suspect]
     Indication: NEOPLASM
     Dosage: SEE IMAGE
     Route: 042
     Dates: start: 20050405
  2. PACLITAXEL [Suspect]
     Indication: NEOPLASM
     Dosage: SEE IMAGE
     Route: 042
     Dates: start: 20050620
  3. CISPLATIN [Suspect]
     Dosage: SEE IMAGE
     Route: 042
     Dates: start: 20050405
  4. RADITION (XRT) [Suspect]
     Dosage: SEE IMAGE
  5. ARANESP (DARBEPOETIN ALFA) SC [Concomitant]
  6. BENADRYL [Concomitant]
  7. DECADRON [Concomitant]
  8. FOSAMAX [Concomitant]
  9. M.V.I. [Concomitant]
  10. MAGNESIUM SULFATE 50% [Concomitant]
  11. SYNTHROID [Concomitant]
  12. ZANTAC [Concomitant]
  13. ZOFRAN [Concomitant]

REACTIONS (2)
  - ANAEMIA [None]
  - PYREXIA [None]
